FAERS Safety Report 25700652 (Version 1)
Quarter: 2025Q3

REPORT INFORMATION
  Report Type: Spontaneous
  Country: EU (occurrence: EU)
  Receive Date: 20250819
  Receipt Date: 20250819
  Transmission Date: 20251020
  Serious: Yes (Other)
  Sender: LEADING PHARMA
  Company Number: EU-LEADINGPHARMA-FR-2025LEALIT00141

PATIENT
  Age: 37 Year
  Sex: Male

DRUGS (1)
  1. HYDROXYUREA [Suspect]
     Active Substance: HYDROXYUREA
     Indication: Sickle cell disease
     Route: 065

REACTIONS (2)
  - Limbal stem cell deficiency [Recovering/Resolving]
  - Product use in unapproved indication [Unknown]
